FAERS Safety Report 9409362 (Version 1)
Quarter: 2013Q3

REPORT INFORMATION
  Report Type: Report from Study
  Country: CA (occurrence: CA)
  Receive Date: 20130719
  Receipt Date: 20130719
  Transmission Date: 20140515
  Serious: Yes (Death)
  Sender: FDA-Public Use
  Company Number: CA-ROCHE-1208539

PATIENT
  Sex: Male
  Weight: 70.5 kg

DRUGS (9)
  1. AVASTIN [Suspect]
     Indication: GLIOBLASTOMA
     Route: 042
     Dates: start: 20120403
  2. AVASTIN [Suspect]
     Route: 042
     Dates: start: 20130102
  3. AVASTIN [Suspect]
     Route: 042
     Dates: start: 20130212, end: 20130618
  4. TYLENOL [Suspect]
     Indication: PREMEDICATION
     Route: 048
     Dates: start: 20120403
  5. TYLENOL [Suspect]
     Route: 048
     Dates: start: 20120717, end: 20130618
  6. BENADRYL [Suspect]
     Indication: PREMEDICATION
     Route: 048
     Dates: start: 20120403
  7. BENADRYL [Suspect]
     Route: 048
     Dates: start: 20120717, end: 20130618
  8. GABAPENTIN [Concomitant]
  9. LOMUSTINE [Concomitant]

REACTIONS (5)
  - Death [Fatal]
  - Somnolence [Unknown]
  - Contusion [Unknown]
  - Disease progression [Unknown]
  - Dry skin [Unknown]
